FAERS Safety Report 6730069-0 (Version None)
Quarter: 2010Q2

REPORT INFORMATION
  Report Type: 
  Country: None (occurrence: None)
  Receive Date: 20100513
  Receipt Date: 20100501
  Transmission Date: 20101027
  Serious: Yes (Other)
  Sender: FDA-Public Use
  Company Number: 2010AP000925

PATIENT
  Age: 74 Year
  Sex: Male

DRUGS (1)
  1. RISPERIDONE [Suspect]

REACTIONS (5)
  - CEREBRAL ATROPHY [None]
  - CONDITION AGGRAVATED [None]
  - CONTUSION [None]
  - FALL [None]
  - PARKINSONISM [None]
